FAERS Safety Report 6672466-8 (Version None)
Quarter: 2010Q2

REPORT INFORMATION
  Report Type: 
  Country: None (occurrence: None)
  Receive Date: 20100408
  Receipt Date: 20100401
  Transmission Date: 20101027
  Serious: Yes (Other)
  Sender: FDA-Public Use
  Company Number: US-NOVOPROD-305654

PATIENT
  Sex: Female

DRUGS (1)
  1. VICTOZA [Suspect]
     Route: 058

REACTIONS (1)
  - PANCREATITIS [None]
